FAERS Safety Report 25925370 (Version 1)
Quarter: 2025Q4

REPORT INFORMATION
  Report Type: Spontaneous
  Country: US (occurrence: None)
  Receive Date: 20251013
  Receipt Date: 20251013
  Transmission Date: 20260117
  Serious: Yes (Other)
  Sender: FDA-CTU
  Company Number: None

PATIENT
  Age: 51 Year
  Sex: Female
  Weight: 90 kg

DRUGS (1)
  1. TREMFYA [Suspect]
     Active Substance: GUSELKUMAB
     Indication: Psoriatic arthropathy
     Dosage: OTHER QUANTITY : 1 INJECTION(S);?OTHER FREQUENCY : EVERY OTHER MONTH;?OTHER ROUTE : INJECTED INTO THIGH;?
     Route: 050
     Dates: start: 20250819, end: 20250819

REACTIONS (4)
  - Immunosuppression [None]
  - Pneumonia [None]
  - Labyrinthitis [None]
  - Deafness [None]

NARRATIVE: CASE EVENT DATE: 20250929
